FAERS Safety Report 5322298-8 (Version None)
Quarter: 2007Q2

REPORT INFORMATION
  Report Type: 
  Country: None (occurrence: None)
  Receive Date: 20070511
  Receipt Date: 20070503
  Transmission Date: 20071010
  Serious: Yes (Hospitalization)
  Sender: FDA-Public Use
  Company Number: B0469348A

PATIENT
  Age: 78 Year
  Sex: Male

DRUGS (3)
  1. ZOFRAN [Suspect]
     Dosage: 8MG SINGLE DOSE
     Route: 042
     Dates: start: 20030104, end: 20070104
  2. ZOFRAN [Suspect]
     Indication: SKIN TEST
     Route: 023
  3. CALCIUM FOLINATE [Concomitant]
     Dosage: 350MG SINGLE DOSE
     Route: 042
     Dates: start: 20030104, end: 20070104

REACTIONS (7)
  - ANAPHYLACTIC SHOCK [None]
  - BLOOD PRESSURE DECREASED [None]
  - BRADYCARDIA [None]
  - FATIGUE [None]
  - HYPERHIDROSIS [None]
  - LOSS OF CONSCIOUSNESS [None]
  - SYNCOPE VASOVAGAL [None]
